FAERS Safety Report 17834591 (Version 4)
Quarter: 2020Q2

REPORT INFORMATION
  Report Type: Spontaneous
  Country: US (occurrence: US)
  Receive Date: 20200528
  Receipt Date: 20200624
  Transmission Date: 20200714
  Serious: Yes (Death, Other)
  Sender: FDA-Public Use
  Company Number: US-MYLANLABS-2020M1052395

PATIENT
  Age: 62 Year
  Sex: Female
  Weight: 44 kg

DRUGS (1)
  1. FENTANYL TRANSDERMAL SYSTEM [Suspect]
     Active Substance: FENTANYL
     Indication: THROAT CANCER
     Dosage: 37.5 MICROGRAM PER HOUR (RECEIVED FOR 1 DAY)
     Route: 062
     Dates: start: 20181002

REACTIONS (1)
  - Therapeutic product effect increased [Fatal]

NARRATIVE: CASE EVENT DATE: 20181002
